FAERS Safety Report 6383748-1 (Version None)
Quarter: 2009Q4

REPORT INFORMATION
  Report Type: 
  Country: None (occurrence: None)
  Receive Date: 20091001
  Receipt Date: 20090924
  Transmission Date: 20100525
  Serious: Yes (Hospitalization, Other)
  Sender: FDA-Public Use
  Company Number: US-BAYER-200930986NA

PATIENT
  Age: 44 Year
  Sex: Female
  Weight: 67 kg

DRUGS (3)
  1. YAZ [Suspect]
     Indication: MENSTRUATION IRREGULAR
     Route: 048
     Dates: start: 20040929, end: 20090819
  2. LEXAPRO [Concomitant]
     Route: 048
     Dates: start: 20050101
  3. COUMADIN [Concomitant]

REACTIONS (4)
  - ARTERIAL THROMBOSIS LIMB [None]
  - DEEP VEIN THROMBOSIS [None]
  - OEDEMA PERIPHERAL [None]
  - PAIN IN EXTREMITY [None]
